FAERS Safety Report 18896729 (Version 1)
Quarter: 2021Q1

REPORT INFORMATION
  Report Type: Spontaneous
  Country: US (occurrence: US)
  Receive Date: 20210211
  Receipt Date: 20210211
  Transmission Date: 20210420
  Serious: No
  Sender: FDA-Public Use
  Company Number: None

PATIENT
  Age: 52 Year
  Sex: Male
  Weight: 94 kg

DRUGS (1)
  1. ATORVASTATIN (ATORVASTATIN CA 20MG TAB) [Suspect]
     Active Substance: ATORVASTATIN CALCIUM
     Indication: HYPERLIPIDAEMIA
     Route: 048
     Dates: start: 20200611, end: 20200613

REACTIONS (2)
  - Hyperhidrosis [None]
  - Abdominal pain [None]

NARRATIVE: CASE EVENT DATE: 20200611
